FAERS Safety Report 17080360 (Version 1)
Quarter: 2019Q4

REPORT INFORMATION
  Report Type: Spontaneous
  Country: GB (occurrence: GB)
  Receive Date: 20191127
  Receipt Date: 20191127
  Transmission Date: 20200122
  Serious: Yes (Other)
  Sender: FDA-Public Use
  Company Number: GB-TEVA-2019-GB-1141715

PATIENT
  Age: 47 Year
  Sex: Female
  Weight: 64.41 kg

DRUGS (1)
  1. FLUOXETINE [Suspect]
     Active Substance: FLUOXETINE HYDROCHLORIDE
     Indication: MENOPAUSAL SYMPTOMS
     Dosage: 20 MG
     Route: 048
     Dates: start: 20181006, end: 20181111

REACTIONS (10)
  - Muscle twitching [Not Recovered/Not Resolved]
  - Hallucination [Recovered/Resolved]
  - Feeling of despair [Recovered/Resolved]
  - Hyperhidrosis [Recovered/Resolved]
  - Insomnia [Recovered/Resolved]
  - Tension [Recovered/Resolved]
  - Yawning [Recovered/Resolved]
  - Nausea [Recovered/Resolved]
  - Bruxism [Recovered/Resolved]
  - Panic attack [Recovered/Resolved]

NARRATIVE: CASE EVENT DATE: 20181014
